FAERS Safety Report 5443583-5 (Version None)
Quarter: 2007Q3

REPORT INFORMATION
  Report Type: 
  Country: None (occurrence: None)
  Receive Date: 20070730
  Receipt Date: 20070129
  Transmission Date: 20080115
  Serious: Yes (Other)
  Sender: FDA-Public Use
  Company Number: 235840

PATIENT
  Age: 60 Year
  Sex: Female

DRUGS (1)
  1. RITUXAN [Suspect]
     Indication: NON-HODGKIN'S LYMPHOMA
     Dosage: 375 MG, 1/WEEK, INTRAVENOUS
     Route: 042
     Dates: start: 20030701

REACTIONS (2)
  - INFUSION RELATED REACTION [None]
  - NON-HODGKIN'S LYMPHOMA [None]
